FAERS Safety Report 12318370 (Version 1)
Quarter: 2016Q2

REPORT INFORMATION
  Report Type: Spontaneous
  Country: GB (occurrence: GB)
  Receive Date: 20160429
  Receipt Date: 20160429
  Transmission Date: 20160815
  Serious: Yes (Other)
  Sender: FDA-Public Use
  Company Number: GB-009507513-1604GBR017206

PATIENT
  Age: 69 Year
  Sex: Female
  Weight: 53 kg

DRUGS (10)
  1. LEVOTHYROXINE SODIUM. [Concomitant]
     Active Substance: LEVOTHYROXINE SODIUM
     Dosage: CUMULATIVE DOSE TO FIRST REACTION: 210.0 DF
     Route: 048
     Dates: start: 20150916
  2. SIMVASTATIN. [Suspect]
     Active Substance: SIMVASTATIN
     Route: 048
     Dates: start: 20150916
  3. CARBOMER [Concomitant]
     Active Substance: CARBOMER
     Dosage: USE AS DIRECTED
     Dates: start: 20150916
  4. LACTULOSE. [Concomitant]
     Active Substance: LACTULOSE
     Dosage: TWO OR FOUR 5ML SPOONSFUL TO BE TAKEN TWICE A DAY
     Dates: start: 20150916
  5. DYMISTA [Concomitant]
     Active Substance: AZELASTINE HYDROCHLORIDE\FLUTICASONE PROPIONATE
     Dosage: UNK UNK, BID
     Dates: start: 20150916
  6. FENBID [Concomitant]
     Active Substance: IBUPROFEN
     Dosage: 1 DF, TID (CUMULATIVE DOSE TO FIRST REACTION: 251.875 DF)
     Dates: start: 20160120
  7. AMITRIPTYLINE HYDROCHLORIDE. [Concomitant]
     Active Substance: AMITRIPTYLINE HYDROCHLORIDE
     Indication: SLEEP DISORDER
     Dosage: 1-2 ONCE NIGHTLY FOR SLEEP
     Route: 048
     Dates: start: 20150916
  8. HYLO FORTE [Concomitant]
     Dosage: USE AS DIRECTED
     Dates: start: 20150916
  9. ATORVASTATIN [Concomitant]
     Active Substance: ATORVASTATIN
     Dosage: 1 DF, QD
     Dates: start: 20160413
  10. LACRI LUBE (MINERAL OIL (+) PETROLATUM, WHITE) [Concomitant]
     Dosage: NOCTE TO BOTH EYES
     Dates: start: 20150916

REACTIONS (1)
  - Pain in extremity [Recovered/Resolved]

NARRATIVE: CASE EVENT DATE: 20160413
